FAERS Safety Report 4803516-9 (Version None)
Quarter: 2005Q4

REPORT INFORMATION
  Report Type: 
  Country: None (occurrence: None)
  Receive Date: 20051014
  Receipt Date: 20051003
  Transmission Date: 20060501
  Serious: Yes (Hospitalization)
  Sender: FDA-Public Use
  Company Number: 2005136689

PATIENT
  Age: 3 Month
  Sex: Male

DRUGS (4)
  1. FOSPHENYTOIN SODIUM [Suspect]
     Indication: EPILEPSY
     Dosage: 7 MG (1 IN 1 D), INTRAVENOUS
     Route: 042
     Dates: start: 20041230, end: 20041230
  2. PHENOBARBITAL TAB [Concomitant]
  3. CLONAZEPAM [Concomitant]
  4. DI-HYDAN (PHENYTOIN) [Concomitant]

REACTIONS (1)
  - NEUTROPENIA [None]
